FAERS Safety Report 8207378-1 (Version None)
Quarter: 2012Q1

REPORT INFORMATION
  Report Type: 
  Country: None (occurrence: None)
  Receive Date: 20120314
  Receipt Date: 20120217
  Transmission Date: 20120608
  Serious: No
  Sender: FDA-Public Use
  Company Number: US-GLAXOSMITHKLINE-A0966361A

PATIENT
  Age: 47 Year
  Sex: Female

DRUGS (1)
  1. NICORETTE (MINT) [Suspect]
     Indication: SMOKING CESSATION THERAPY
     Route: 002
     Dates: start: 20120212

REACTIONS (4)
  - DYSPEPSIA [None]
  - MALAISE [None]
  - NONSPECIFIC REACTION [None]
  - VOMITING [None]
